FAERS Safety Report 12203001 (Version 1)
Quarter: 2016Q1

REPORT INFORMATION
  Report Type: Spontaneous
  Country: US (occurrence: US)
  Receive Date: 20160323
  Receipt Date: 20160323
  Transmission Date: 20160526
  Serious: No
  Sender: FDA-Public Use
  Company Number: US-GLENMARK PHARMACEUTICALS INC, USA.-GGEL20120100050

PATIENT

DRUGS (1)
  1. ZONISAMIDE. [Suspect]
     Active Substance: ZONISAMIDE
     Dosage: UNK UNK, HS
     Route: 048
     Dates: end: 20120309

REACTIONS (3)
  - Chest pain [Unknown]
  - Hypoaesthesia oral [Unknown]
  - Dysgeusia [Unknown]
